FAERS Safety Report 9417223 (Version 1)
Quarter: 2013Q3

REPORT INFORMATION
  Report Type: Spontaneous
  Country: US (occurrence: US)
  Receive Date: 20130724
  Receipt Date: 20130724
  Transmission Date: 20140515
  Serious: No
  Sender: FDA-Public Use
  Company Number: US-BAUSCH-BL-2013-003527

PATIENT
  Age: 81 Year
  Sex: Female
  Weight: 74.46 kg

DRUGS (3)
  1. OPCON-A [Suspect]
     Indication: DRY EYE
     Dosage: 1 DROP IN EACH EYE; ONCE; OPHTHALMIC
     Route: 047
     Dates: start: 201305, end: 201305
  2. OPCON-A [Suspect]
     Indication: EYE PRURITUS
  3. LEVOTHYROXINE [Concomitant]
     Indication: THYROID DISORDER

REACTIONS (2)
  - Off label use [Recovered/Resolved]
  - Dizziness [Recovered/Resolved]
